FAERS Safety Report 6566207-2 (Version None)
Quarter: 2010Q1

REPORT INFORMATION
  Report Type: 
  Country: None (occurrence: None)
  Receive Date: 20100202
  Receipt Date: 20100121
  Transmission Date: 20100710
  Serious: Yes (Other)
  Sender: FDA-Public Use
  Company Number: JP-PFIZER INC-2010002401

PATIENT
  Age: 60 Year
  Sex: Female

DRUGS (3)
  1. MYCOBUTIN [Suspect]
     Indication: MYCOBACTERIAL INFECTION
     Dosage: UNK
     Route: 048
     Dates: start: 20090601
  2. CLARITHROMYCIN [Concomitant]
     Route: 048
     Dates: start: 20090101
  3. ETHAMBUTOL [Concomitant]
     Route: 048
     Dates: start: 20090101

REACTIONS (1)
  - BLOOD BILIRUBIN ABNORMAL [None]
